FAERS Safety Report 13664823 (Version 6)
Quarter: 2017Q3

REPORT INFORMATION
  Report Type: Spontaneous
  Country: US (occurrence: US)
  Receive Date: 20170619
  Receipt Date: 20170825
  Transmission Date: 20171127
  Serious: Yes (Other)
  Sender: FDA-Public Use
  Company Number: US-009507513-1706USA005457

PATIENT
  Age: 30 Year
  Sex: Female
  Weight: 81.18 kg

DRUGS (1)
  1. NEXPLANON [Suspect]
     Active Substance: ETONOGESTREL
     Indication: PROPHYLAXIS
     Dosage: 1 IMPLANT, ONE TIME
     Route: 065
     Dates: start: 20161025

REACTIONS (7)
  - Device deployment issue [Not Recovered/Not Resolved]
  - Pregnancy with implant contraceptive [Unknown]
  - Unintended pregnancy [Unknown]
  - Implant site infection [Unknown]
  - Complication associated with device [Not Recovered/Not Resolved]
  - Drug dose omission [Unknown]
  - Device difficult to use [Not Recovered/Not Resolved]

NARRATIVE: CASE EVENT DATE: 201611
